FAERS Safety Report 7799340-8 (Version None)
Quarter: 2011Q4

REPORT INFORMATION
  Report Type: 
  Country: None (occurrence: None)
  Receive Date: 20111006
  Receipt Date: 20110929
  Transmission Date: 20120403
  Serious: Yes (Other)
  Sender: FDA-Public Use
  Company Number: PHEH2011US05693

PATIENT
  Sex: Female

DRUGS (4)
  1. RECLAST [Suspect]
     Route: 042
     Dates: start: 20110411
  2. PREDNISONE [Suspect]
     Indication: INFLUENZA
     Dosage: UNK UKN, UNK
  3. VITAMIN D [Concomitant]
     Dosage: UNK UKN, UNK
  4. CALCIUM CARBONATE [Concomitant]
     Dosage: UNK UKN, UNK

REACTIONS (11)
  - GAIT DISTURBANCE [None]
  - PARAESTHESIA [None]
  - ARTHRALGIA [None]
  - PAIN IN EXTREMITY [None]
  - PAIN [None]
  - INFLUENZA [None]
  - CHILLS [None]
  - NAUSEA [None]
  - ASTHENIA [None]
  - PYREXIA [None]
  - MYALGIA [None]
